FAERS Safety Report 9923991 (Version 2)
Quarter: 2014Q1

REPORT INFORMATION
  Report Type: Report from Study
  Country: US (occurrence: US)
  Receive Date: 20140225
  Receipt Date: 20140311
  Transmission Date: 20141002
  Serious: No
  Sender: FDA-Public Use
  Company Number: US-GILEAD-2014-0095024

PATIENT
  Age: 64 Year
  Sex: Female
  Weight: 94.79 kg

DRUGS (2)
  1. SOFOSBUVIR [Suspect]
     Indication: CHRONIC HEPATITIS C
     Dosage: 400 MG, UNK
     Route: 048
     Dates: start: 20130218
  2. RIBAVIRIN [Concomitant]
     Dosage: UNK
     Dates: start: 20130221

REACTIONS (6)
  - Hypertension [Recovering/Resolving]
  - Emotional disorder [Unknown]
  - Depression [Unknown]
  - Haemoglobin decreased [Recovering/Resolving]
  - Stress [Recovered/Resolved]
  - Insomnia [Recovering/Resolving]
